FAERS Safety Report 10017215 (Version 1)
Quarter: 2014Q1

REPORT INFORMATION
  Report Type: Report from Study
  Country: BR (occurrence: BR)
  Receive Date: 20140318
  Receipt Date: 20140318
  Transmission Date: 20141002
  Serious: Yes (Hospitalization, Other)
  Sender: FDA-Public Use
  Company Number: PHHY2014BR031090

PATIENT
  Age: 86 Year
  Sex: Female
  Weight: 83 kg

DRUGS (1)
  1. EXELON PATCH [Suspect]
     Indication: CONFUSIONAL STATE
     Dosage: 18 MG / 10 CM2 (9.5 MG/24 HOURS)
     Route: 062
     Dates: start: 201310

REACTIONS (4)
  - Anaemia [Recovering/Resolving]
  - Confusional state [Recovering/Resolving]
  - Urinary tract infection [Recovering/Resolving]
  - Diabetes mellitus [Recovering/Resolving]
